FAERS Safety Report 14961381 (Version 1)
Quarter: 2018Q2

REPORT INFORMATION
  Report Type: Spontaneous
  Country: LT (occurrence: LT)
  Receive Date: 20180601
  Receipt Date: 20180601
  Transmission Date: 20180711
  Serious: Yes (Other)
  Sender: FDA-Public Use
  Company Number: LT-AUROBINDO-AUR-APL-2018-027900

PATIENT
  Age: 27 Year
  Sex: Male

DRUGS (1)
  1. CEFUROXIME. [Suspect]
     Active Substance: CEFUROXIME
     Indication: SEPSIS
     Dosage: UNK
     Route: 065

REACTIONS (5)
  - Haemodynamic instability [Unknown]
  - Hypotension [Unknown]
  - Septic shock [Unknown]
  - Headache [Unknown]
  - Product use in unapproved indication [Unknown]
